FAERS Safety Report 8270654-0 (Version None)
Quarter: 2012Q2

REPORT INFORMATION
  Report Type: 
  Country: None (occurrence: None)
  Receive Date: 20120410
  Receipt Date: 20120326
  Transmission Date: 20120825
  Serious: No
  Sender: FDA-Public Use
  Company Number: US-ENDO PHARMACEUTICALS INC.-OPER20120446

PATIENT
  Sex: Male

DRUGS (1)
  1. OPANA ER [Suspect]
     Indication: PAIN
     Route: 048
     Dates: start: 20111101, end: 20120304

REACTIONS (2)
  - WITHDRAWAL SYNDROME [None]
  - DRUG DEPENDENCE [None]
